FAERS Safety Report 6638407-4 (Version None)
Quarter: 2010Q1

REPORT INFORMATION
  Report Type: 
  Country: None (occurrence: None)
  Receive Date: 20100317
  Receipt Date: 20100308
  Transmission Date: 20100710
  Serious: Yes (Life-Threatening)
  Sender: FDA-Public Use
  Company Number: D0066740A

PATIENT
  Sex: Male

DRUGS (9)
  1. FRAXIPARIN [Suspect]
     Indication: THROMBOSIS PROPHYLAXIS
     Dosage: .4ML UNKNOWN
     Route: 058
     Dates: start: 20090114
  2. BERLOSIN [Suspect]
     Indication: PAIN
     Dosage: 1G VARIABLE DOSE
     Route: 042
     Dates: start: 20090101, end: 20090113
  3. ERYTHROMYCIN [Suspect]
     Dosage: 200MG THREE TIMES PER DAY
     Route: 042
     Dates: start: 20090105, end: 20090113
  4. COMBACTAM [Suspect]
     Dosage: .5G THREE TIMES PER DAY
     Route: 042
     Dates: start: 20090107, end: 20090113
  5. PIPERACILLIN [Suspect]
     Dosage: 4G THREE TIMES PER DAY
     Route: 042
     Dates: start: 20090107, end: 20090113
  6. AMPICILLIN AND SULBACTAM [Suspect]
     Dosage: 3G THREE TIMES PER DAY
     Route: 042
     Dates: start: 20090114, end: 20090118
  7. TAVANIC [Suspect]
     Dosage: 500MG THREE TIMES PER DAY
     Route: 048
     Dates: start: 20090116
  8. MULTIPLE MEDICATION [Suspect]
     Route: 065
  9. MULTIPLE MEDICATION [Concomitant]
     Route: 065

REACTIONS (7)
  - BLISTER [None]
  - CONJUNCTIVITIS [None]
  - GASTRITIS [None]
  - GENITAL EROSION [None]
  - HYPERTENSION [None]
  - RASH MACULAR [None]
  - TOXIC EPIDERMAL NECROLYSIS [None]
